FAERS Safety Report 6534656-4 (Version None)
Quarter: 2010Q1

REPORT INFORMATION
  Report Type: 
  Country: None (occurrence: None)
  Receive Date: 20100112
  Receipt Date: 20100104
  Transmission Date: 20100710
  Serious: Yes (Hospitalization)
  Sender: FDA-Public Use
  Company Number: GXKR2009PL13205

PATIENT
  Age: 34 Year
  Sex: Female

DRUGS (4)
  1. ZOLPIDEM (NGX) [Suspect]
     Indication: INSOMNIA
     Route: 065
  2. ZOLPIDEM (NGX) [Suspect]
     Indication: ANXIOLYTIC THERAPY
     Dosage: PRESCRIBED 6 DF DAILY WITH GRADUAL REDUCTION
     Route: 065
  3. ZOLPIDEM (NGX) [Suspect]
     Indication: DEPRESSED MOOD
     Dosage: 600 MG/DAY
     Route: 065
  4. ZOLPIDEM (NGX) [Suspect]
     Indication: ANALGESIC THERAPY

REACTIONS (9)
  - CONVULSION [None]
  - DRUG DEPENDENCE [None]
  - DRUG WITHDRAWAL SYNDROME [None]
  - HYPOAESTHESIA [None]
  - INTENTIONAL DRUG MISUSE [None]
  - IRRITABILITY [None]
  - PAIN [None]
  - TENSION [None]
  - TREMOR [None]
